FAERS Safety Report 22385168 (Version 1)
Quarter: 2023Q2

REPORT INFORMATION
  Report Type: Report from Study
  Country: US (occurrence: US)
  Receive Date: 20230530
  Receipt Date: 20230530
  Transmission Date: 20230722
  Serious: Yes (Other)
  Sender: FDA-Public Use
  Company Number: US-AMGEN-USASL2023090106

PATIENT
  Age: 24 Year
  Sex: Male
  Weight: 58.957 kg

DRUGS (1)
  1. ENBREL [Suspect]
     Active Substance: ETANERCEPT
     Indication: Psoriatic arthropathy
     Dosage: 50 MILLIGRAM, QWK
     Route: 065
     Dates: start: 202304, end: 202304

REACTIONS (9)
  - Haematochezia [Recovered/Resolved]
  - Arthralgia [Unknown]
  - Emotional distress [Unknown]
  - Brain fog [Unknown]
  - Hypoaesthesia [Unknown]
  - Fear of death [Unknown]
  - Fall [Unknown]
  - Feeling abnormal [Unknown]
  - Mental disorder [Unknown]

NARRATIVE: CASE EVENT DATE: 20230101
